FAERS Safety Report 10006403 (Version 2)
Quarter: 2014Q1

REPORT INFORMATION
  Report Type: Spontaneous
  Country: JP (occurrence: JP)
  Receive Date: 20140313
  Receipt Date: 20140326
  Transmission Date: 20141002
  Serious: Yes (Death, Life-Threatening, Other)
  Sender: FDA-Public Use
  Company Number: JP-OTSUKA-JP-2014-12428

PATIENT
  Age: 60 Year
  Sex: Male

DRUGS (11)
  1. SAMSCA [Suspect]
     Indication: POLYURIA
     Dosage: 3.75 MG MILLIGRAM(S), DAILY DOSE
     Route: 048
     Dates: start: 20131226, end: 20140102
  2. SAMSCA [Suspect]
     Dosage: 7.5 MG MILLIGRAM(S), DAILY DOSE
     Route: 048
     Dates: start: 20140211, end: 20140211
  3. SAMSCA [Suspect]
     Dosage: 15 MG MILLIGRAM(S), DAILY DOSE
     Route: 048
     Dates: start: 20140212, end: 20140212
  4. FEBURIC [Suspect]
     Indication: PRODUCT USED FOR UNKNOWN INDICATION
     Dosage: 10 MG MILLIGRAM(S), DAILY DOSE
     Route: 048
     Dates: start: 20140211, end: 20140212
  5. WARFARIN K [Concomitant]
     Dosage: 2.5 MG MILLIGRAM(S), DAILY DOSE
     Route: 048
  6. WARFARIN K [Concomitant]
     Dosage: 1.25 MG MILLIGRAM(S), DAILY DOSE
     Route: 048
     Dates: start: 20131227, end: 20140214
  7. ARTIST [Concomitant]
     Dosage: 5 MG MILLIGRAM(S), DAILY DOSE
     Route: 048
     Dates: start: 20131227, end: 20140212
  8. BAYASPIRIN [Concomitant]
     Dosage: 100 MG MILLIGRAM(S), DAILY DOSE
     Route: 048
     Dates: start: 20131227, end: 20140214
  9. THYRADIN [Concomitant]
     Dosage: 137.5 MCG, DAILY DOSE
     Route: 048
     Dates: start: 20131227, end: 20140214
  10. LASIX [Concomitant]
     Dosage: 20 MG MILLIGRAM(S), DAILY DOSE
     Route: 042
     Dates: start: 20140209, end: 20140210
  11. LASIX [Concomitant]
     Dosage: 40 MG MILLIGRAM(S), DAILY DOSE
     Route: 042
     Dates: start: 20140211

REACTIONS (4)
  - Septic shock [Fatal]
  - Hepatitis acute [Not Recovered/Not Resolved]
  - Blood creatine phosphokinase increased [Unknown]
  - Renal failure [Unknown]
